FAERS Safety Report 11070218 (Version 1)
Quarter: 2015Q2

REPORT INFORMATION
  Report Type: Spontaneous
  Country: US (occurrence: US)
  Receive Date: 20150427
  Receipt Date: 20150427
  Transmission Date: 20150821
  Serious: No
  Sender: FDA-Public Use
  Company Number: US-MALLINCKRODT-T201500914

PATIENT
  Age: 58 Year
  Sex: Female

DRUGS (1)
  1. HYDROCODONE/ACETAMINOPHEN [Suspect]
     Active Substance: ACETAMINOPHEN\HYDROCODONE
     Indication: PAIN
     Dosage: 7.5/325 MG, UNK
     Route: 048
     Dates: start: 201409, end: 201409

REACTIONS (4)
  - Palpitations [Recovered/Resolved]
  - Drug effect decreased [Recovered/Resolved]
  - Product quality issue [None]
  - Chest discomfort [Recovered/Resolved]

NARRATIVE: CASE EVENT DATE: 201409
